FAERS Safety Report 9949684 (Version 1)
Quarter: 2014Q1

REPORT INFORMATION
  Report Type: Report from Study
  Country: US (occurrence: US)
  Receive Date: 20140304
  Receipt Date: 20140304
  Transmission Date: 20141002
  Serious: No
  Sender: FDA-Public Use
  Company Number: US-ABBVIE-13P-163-1069079-00

PATIENT
  Age: 18 Year
  Sex: Female

DRUGS (6)
  1. HUMIRA [Suspect]
     Indication: CROHN^S DISEASE
     Dates: start: 20130309
  2. LIALDA [Concomitant]
     Indication: CROHN^S DISEASE
  3. PREVACID [Concomitant]
     Indication: GASTROOESOPHAGEAL REFLUX DISEASE
  4. ENTOCORT [Concomitant]
     Indication: CROHN^S DISEASE
     Dosage: 3 MG DAILY
  5. FOLIC ACID [Concomitant]
     Indication: ANAEMIA
     Dosage: DAILY
  6. CALCIUM [Concomitant]
     Indication: PRODUCT USED FOR UNKNOWN INDICATION

REACTIONS (5)
  - Fatigue [Recovering/Resolving]
  - Hypersomnia [Recovering/Resolving]
  - Nausea [Recovered/Resolved]
  - Nausea [Unknown]
  - Dizziness [Unknown]
